FAERS Safety Report 6648677-4 (Version None)
Quarter: 2010Q1

REPORT INFORMATION
  Report Type: 
  Country: None (occurrence: None)
  Receive Date: 20100324
  Receipt Date: 20090113
  Transmission Date: 20100710
  Serious: Yes (Hospitalization)
  Sender: FDA-Public Use
  Company Number: PHHY2009TW60943

PATIENT

DRUGS (1)
  1. GLEEVEC [Suspect]

REACTIONS (3)
  - BONE MARROW TRANSPLANT [None]
  - MYALGIA [None]
  - PYREXIA [None]
